FAERS Safety Report 11139490 (Version 6)
Quarter: 2015Q3

REPORT INFORMATION
  Report Type: Spontaneous
  Country: JP (occurrence: JP)
  Receive Date: 20150527
  Receipt Date: 20150729
  Transmission Date: 20151125
  Serious: Yes (Life-Threatening, Hospitalization, Other)
  Sender: FDA-Public Use
  Company Number: JP-ASTELLAS-2015JP010939AA

PATIENT
  Age: 72 Year
  Sex: Male

DRUGS (7)
  1. ZOLADEX [Concomitant]
     Active Substance: GOSERELIN ACETATE
     Indication: ANTIANDROGEN THERAPY
     Dosage: 10.8 MG, ONCE DAILY
     Route: 065
     Dates: end: 20150513
  2. XTANDI [Suspect]
     Active Substance: ENZALUTAMIDE
     Indication: HORMONE-REFRACTORY PROSTATE CANCER
     Route: 048
     Dates: start: 20150304, end: 20150513
  3. NAUZELIN [Concomitant]
     Active Substance: DOMPERIDONE
     Indication: NAUSEA
     Dosage: UNK UNK, AS NEEDED
     Route: 048
     Dates: start: 20150304, end: 20150513
  4. NAUZELIN [Concomitant]
     Active Substance: DOMPERIDONE
     Indication: VOMITING
  5. TEPRENONE [Concomitant]
     Active Substance: TEPRENONE
     Indication: DYSPEPSIA
     Route: 048
     Dates: start: 20150304, end: 20150318
  6. ZOMETA [Concomitant]
     Active Substance: ZOLEDRONIC ACID
     Indication: METASTASES TO BONE
     Route: 065
     Dates: end: 20150513
  7. PROTECADIN [Concomitant]
     Active Substance: LAFUTIDINE
     Indication: HYPERCHLORHYDRIA
     Route: 048
     Dates: start: 20150304, end: 20150318

REACTIONS (3)
  - Fall [Unknown]
  - Spinal cord injury cervical [Unknown]
  - Hyponatraemia [Recovering/Resolving]

NARRATIVE: CASE EVENT DATE: 20150513
